FAERS Safety Report 7429414-2 (Version None)
Quarter: 2011Q2

REPORT INFORMATION
  Report Type: 
  Country: None (occurrence: None)
  Receive Date: 20110414
  Receipt Date: 20110330
  Transmission Date: 20111010
  Serious: Yes (Hospitalization)
  Sender: FDA-Public Use
  Company Number: 029134

PATIENT
  Sex: Female
  Weight: 140 kg

DRUGS (8)
  1. ESTRADIOL [Concomitant]
  2. LEVOTHYROXINE SODIUM [Concomitant]
  3. ADDERALL 10 [Concomitant]
  4. ESTRADIOL [Concomitant]
     Indication: FOOD ALLERGY
     Dosage: 5 MG QD ORAL
     Route: 048
     Dates: start: 20110201, end: 20110218
  5. XYZAL [Suspect]
     Indication: FOOD ALLERGY
     Dosage: 5 MG QD ORAL
     Route: 048
     Dates: start: 20110201, end: 20110218
  6. TOPIRAMATE [Concomitant]
  7. CYMBALTA [Concomitant]
  8. CYMBALTA [Concomitant]

REACTIONS (8)
  - CHEST PAIN [None]
  - SINUS TACHYCARDIA [None]
  - FATIGUE [None]
  - PALPITATIONS [None]
  - RHINITIS ALLERGIC [None]
  - CHEST DISCOMFORT [None]
  - BLOOD PRESSURE DECREASED [None]
  - ANGIOEDEMA [None]
